FAERS Safety Report 8956899 (Version 3)
Quarter: 2013Q2

REPORT INFORMATION
  Report Type: Report from Study
  Country: CA (occurrence: CA)
  Receive Date: 20121210
  Receipt Date: 20130425
  Transmission Date: 20140414
  Serious: Yes (Other)
  Sender: FDA-Public Use
  Company Number: CA-ABBOTT-12P-028-1017613-00

PATIENT
  Sex: Female
  Weight: 51.7 kg

DRUGS (2)
  1. HUMIRA [Suspect]
     Indication: CROHN^S DISEASE
     Route: 058
     Dates: start: 20080714
  2. HUMIRA [Suspect]
     Route: 058
     Dates: start: 20130419

REACTIONS (9)
  - Mass [Not Recovered/Not Resolved]
  - Lymphoma [Not Recovered/Not Resolved]
  - Oropharyngeal pain [Recovering/Resolving]
  - Productive cough [Unknown]
  - Increased bronchial secretion [Unknown]
  - Haemoptysis [Unknown]
  - Dysphonia [Recovering/Resolving]
  - Laryngeal haemorrhage [Unknown]
  - Reflux laryngitis [Unknown]
